FAERS Safety Report 7463280-4 (Version None)
Quarter: 2011Q2

REPORT INFORMATION
  Report Type: 
  Country: None (occurrence: None)
  Receive Date: 20110506
  Receipt Date: 20110503
  Transmission Date: 20111010
  Serious: Yes (Other)
  Sender: FDA-Public Use
  Company Number: DE-ROCHE-775218

PATIENT
  Age: 67 Year
  Sex: Female

DRUGS (5)
  1. THEOPHYLLINE [Interacting]
     Dosage: IF REQUIRED
     Route: 065
  2. THEOPHYLLINE [Interacting]
     Indication: ASTHMA
     Route: 065
  3. XELODA [Suspect]
     Indication: BREAST CANCER METASTATIC
     Route: 048
  4. CORTISON [Concomitant]
     Indication: ASTHMA
     Dosage: IF REQUIRED
  5. TYVERB [Concomitant]
     Indication: BREAST CANCER METASTATIC

REACTIONS (3)
  - DRUG INEFFECTIVE [None]
  - DRUG INTERACTION [None]
  - ASTHMA [None]
